FAERS Safety Report 6220573-6 (Version None)
Quarter: 2009Q2

REPORT INFORMATION
  Report Type: 
  Country: None (occurrence: None)
  Receive Date: 20090610
  Receipt Date: 20090602
  Transmission Date: 20091009
  Serious: Yes (Death, Hospitalization)
  Sender: FDA-Public Use
  Company Number: US-BIOGENIDEC-2009BI014192

PATIENT
  Sex: Male

DRUGS (1)
  1. AVONEX [Suspect]
     Indication: MULTIPLE SCLEROSIS
     Route: 030
     Dates: start: 19970501, end: 20010101

REACTIONS (6)
  - ABASIA [None]
  - FAECAL INCONTINENCE [None]
  - MOBILITY DECREASED [None]
  - PNEUMONIA [None]
  - PROGRESSIVE MULTIPLE SCLEROSIS [None]
  - URINARY INCONTINENCE [None]
